FAERS Safety Report 6816182-8 (Version None)
Quarter: 2010Q3

REPORT INFORMATION
  Report Type: 
  Country: None (occurrence: None)
  Receive Date: 20100702
  Receipt Date: 20100702
  Transmission Date: 20110219
  Serious: Yes (Life-Threatening)
  Sender: FDA-Public Use
  Company Number: None

PATIENT
  Sex: Male
  Weight: 90.7194 kg

DRUGS (2)
  1. VALPROIC ACID [Suspect]
     Indication: HEMIPARESIS
     Dosage: 500 MG TWICE A DAY PO
     Route: 048
     Dates: start: 20010301, end: 20050116
  2. VALPROIC ACID [Suspect]
     Indication: MIGRAINE
     Dosage: 500 MG TWICE A DAY PO
     Route: 048
     Dates: start: 20010301, end: 20050116

REACTIONS (11)
  - ATAXIA [None]
  - COGNITIVE DISORDER [None]
  - DEMYELINATION [None]
  - DYSGRAPHIA [None]
  - FEAR [None]
  - FEELING ABNORMAL [None]
  - FEELING COLD [None]
  - IMPAIRED DRIVING ABILITY [None]
  - MEMORY IMPAIRMENT [None]
  - MOTOR DYSFUNCTION [None]
  - WALKING AID USER [None]
